FAERS Safety Report 5895351-8 (Version None)
Quarter: 2008Q3

REPORT INFORMATION
  Report Type: 
  Country: None (occurrence: None)
  Receive Date: 20080923
  Receipt Date: 20080923
  Transmission Date: 20090109
  Serious: Yes (Other)
  Sender: FDA-Public Use
  Company Number: None

PATIENT
  Age: 31 Year
  Sex: Male
  Weight: 83.9154 kg

DRUGS (7)
  1. MS CONTIN [Suspect]
     Indication: PAIN MANAGEMENT
     Dosage: 100 MG 2X DAILY PO
     Route: 048
     Dates: start: 20080815, end: 20080921
  2. LYRICA [Concomitant]
  3. XANAX [Concomitant]
  4. LUVOX [Concomitant]
  5. CLONIDINE [Concomitant]
  6. CLARITIN [Concomitant]
  7. SINGULAIR [Concomitant]

REACTIONS (2)
  - PHARMACEUTICAL PRODUCT COMPLAINT [None]
  - VOMITING [None]
